FAERS Safety Report 10173064 (Version 1)
Quarter: 2014Q2

REPORT INFORMATION
  Report Type: Spontaneous
  Country: US (occurrence: None)
  Receive Date: 20140514
  Receipt Date: 20140514
  Transmission Date: 20141212
  Serious: Yes (Other)
  Sender: FDA-Public Use
  Company Number: None

PATIENT
  Age: 29 Year
  Sex: Female
  Weight: 104.33 kg

DRUGS (4)
  1. LAMOTRIGINE [Suspect]
     Indication: AFFECTIVE DISORDER
     Dosage: LAMOTROGINE, QD, ORAL
     Route: 048
     Dates: start: 20130920, end: 20131021
  2. DEPLIN [Concomitant]
  3. BUPROPION [Concomitant]
  4. ESCITALOPRAM [Concomitant]

REACTIONS (3)
  - Depression [None]
  - Irritability [None]
  - Educational problem [None]
